FAERS Safety Report 21254789 (Version 1)
Quarter: 2022Q3

REPORT INFORMATION
  Report Type: Spontaneous
  Country: US (occurrence: None)
  Receive Date: 20220824
  Receipt Date: 20220824
  Transmission Date: 20221026
  Serious: No
  Sender: FDA-Public Use
  Company Number: None

PATIENT
  Age: 8 Year
  Sex: Male
  Weight: 27 kg

DRUGS (1)
  1. DIMETAPP PAEDIATRIC [Suspect]
     Active Substance: BROMPHENIRAMINE MALEATE\PSEUDOEPHEDRINE HYDROCHLORIDE
     Indication: Multiple allergies
     Route: 048
     Dates: start: 20220821, end: 20220824

REACTIONS (2)
  - Malaise [None]
  - Expired product administered [None]
